FAERS Safety Report 7151238-4 (Version None)
Quarter: 2010Q4

REPORT INFORMATION
  Report Type: 
  Country: None (occurrence: None)
  Receive Date: 20101210
  Receipt Date: 20101130
  Transmission Date: 20110411
  Serious: Yes (Hospitalization)
  Sender: FDA-Public Use
  Company Number: IL-ELI_LILLY_AND_COMPANY-IL201012000150

PATIENT
  Age: 57 Year
  Sex: Female
  Weight: 71 kg

DRUGS (13)
  1. FORTEO [Suspect]
     Indication: HYPOPARATHYROIDISM
     Dosage: 40 UG, DAILY (1/D)
     Route: 065
     Dates: start: 20101118
  2. FORTEO [Suspect]
     Dosage: 20 UG, 3/D
  3. ASPIRIN [Concomitant]
     Dosage: UNK, UNKNOWN
     Route: 065
  4. NORMITEN [Concomitant]
     Dosage: UNK, UNKNOWN
     Route: 065
  5. CIPRAMIL [Concomitant]
     Dosage: UNK, UNKNOWN
     Route: 065
  6. MONONIT [Concomitant]
     Dosage: UNK, UNKNOWN
     Route: 065
  7. ELTROXIN [Concomitant]
     Dosage: UNK, UNKNOWN
     Route: 065
  8. SIMVASTATIN [Concomitant]
     Dosage: UNK, UNKNOWN
     Route: 065
  9. VITAMIN E [Concomitant]
     Dosage: UNK, UNKNOWN
     Route: 065
  10. IRON [Concomitant]
     Dosage: UNK, UNKNOWN
     Route: 065
  11. FOLIC ACID [Concomitant]
     Dosage: UNK, UNKNOWN
     Route: 065
  12. CALCIUM CARBONATE [Concomitant]
     Dosage: UNK, UNKNOWN
     Route: 065
  13. MAGNESIUM [Concomitant]
     Dosage: UNK, UNKNOWN
     Route: 065

REACTIONS (6)
  - BLOOD PHOSPHORUS ABNORMAL [None]
  - HYPOCALCAEMIA [None]
  - MEDICATION ERROR [None]
  - NAUSEA [None]
  - OFF LABEL USE [None]
  - OVERDOSE [None]
